FAERS Safety Report 9984527 (Version 3)
Quarter: 2014Q2

REPORT INFORMATION
  Report Type: Spontaneous
  Country: US (occurrence: US)
  Receive Date: 20140307
  Receipt Date: 20140515
  Transmission Date: 20141212
  Serious: Yes (Other)
  Sender: FDA-Public Use
  Company Number: US-TEVA-467313USA

PATIENT
  Sex: Female

DRUGS (1)
  1. PARAGARD 380A [Suspect]
     Indication: CONTRACEPTION
     Route: 015
     Dates: start: 20080625, end: 20130924

REACTIONS (3)
  - Medical device complication [Not Recovered/Not Resolved]
  - Embedded device [Unknown]
  - Vaginal haemorrhage [Unknown]
